FAERS Safety Report 10143147 (Version 1)
Quarter: 2014Q2

REPORT INFORMATION
  Report Type: Spontaneous
  Country: IN (occurrence: IN)
  Receive Date: 20140430
  Receipt Date: 20140430
  Transmission Date: 20141212
  Serious: Yes (Death, Other)
  Sender: FDA-Public Use
  Company Number: IN-ASTELLAS-2014US004495

PATIENT
  Age: 49 Year
  Sex: Male

DRUGS (1)
  1. AMPHOTERICIN B [Suspect]
     Indication: FUNGAL INFECTION
     Route: 042

REACTIONS (1)
  - Drug ineffective [Fatal]
